FAERS Safety Report 5301088-6 (Version None)
Quarter: 2007Q2

REPORT INFORMATION
  Report Type: 
  Country: None (occurrence: None)
  Receive Date: 20070411
  Receipt Date: 20070329
  Transmission Date: 20071010
  Serious: Yes (Hospitalization)
  Sender: FDA-Public Use
  Company Number: 2007-01653

PATIENT
  Age: 59 Year
  Sex: Female

DRUGS (8)
  1. HYDROXYCHLOROQUINE SULFATE [Suspect]
     Indication: CUTANEOUS LUPUS ERYTHEMATOSUS
     Dosage: 200 MG, BID, ORAL
     Route: 048
     Dates: start: 19920101, end: 19960101
  2. CHLOROQUINE PHOSPHATE [Suspect]
     Indication: CUTANEOUS LUPUS ERYTHEMATOSUS
     Dosage: 300 MG, DAILY, ORAL
     Route: 048
     Dates: start: 19960101, end: 20011001
  3. COLLAGENAN (CALCIUM PANTOTHENATE, AMINOBENZOIC ACID, MEPACRINE HYDROCH [Suspect]
     Indication: CUTANEOUS LUPUS ERYTHEMATOSUS
     Dosage: BID, ORAL
     Route: 048
     Dates: start: 19860101, end: 19890101
  4. PREDNISONE TAB [Concomitant]
  5. HYDROCORTISONE [Concomitant]
  6. RAMIPRIL [Concomitant]
  7. PRAVASTATIN [Concomitant]
  8. ASPIRIN [Concomitant]

REACTIONS (6)
  - ATRIOVENTRICULAR BLOCK COMPLETE [None]
  - BUNDLE BRANCH BLOCK LEFT [None]
  - CARDIAC FAILURE CONGESTIVE [None]
  - CARDIOMYOPATHY [None]
  - DRUG TOXICITY [None]
  - HEART TRANSPLANT [None]
